FAERS Safety Report 6017638-0 (Version None)
Quarter: 2008Q4

REPORT INFORMATION
  Report Type: 
  Country: None (occurrence: None)
  Receive Date: 20081219
  Receipt Date: 20081217
  Transmission Date: 20090506
  Serious: Yes (Hospitalization)
  Sender: FDA-Public Use
  Company Number: B0550966A

PATIENT
  Age: 59 Year
  Sex: Female

DRUGS (8)
  1. PAXIL [Suspect]
     Dosage: 20 MG / PER DAY /
     Dates: start: 20011201, end: 20020801
  2. FLUOXETINE [Suspect]
     Dosage: 20 MG / PER DAY /
     Dates: start: 19980601, end: 20011201
  3. SERTRALINE HYDROCHLORIDE [Suspect]
     Dosage: 50 MG / PER DAY /
     Dates: start: 20020801
  4. RISPERIDONE [Suspect]
  5. VENLAFAXINE HYDROCHLORIDE [Concomitant]
  6. TRAZODONE [Concomitant]
  7. ALPRAZOLAM [Concomitant]
  8. LORAZEPAM [Concomitant]

REACTIONS (8)
  - BLOOD PROLACTIN INCREASED [None]
  - CHEST PAIN [None]
  - JOINT SWELLING [None]
  - OSTEOPOROSIS [None]
  - PATHOLOGICAL FRACTURE [None]
  - POTENTIATING DRUG INTERACTION [None]
  - RESPIRATORY DISTRESS [None]
  - RIB FRACTURE [None]
